FAERS Safety Report 18086813 (Version 2)
Quarter: 2020Q4

REPORT INFORMATION
  Report Type: Spontaneous
  Country: US (occurrence: US)
  Receive Date: 20200729
  Receipt Date: 20201125
  Transmission Date: 20210113
  Serious: No
  Sender: FDA-Public Use
  Company Number: US-PFIZER INC-2020287914

PATIENT
  Age: 64 Year
  Sex: Female
  Weight: 99 kg

DRUGS (2)
  1. IBRANCE [Suspect]
     Active Substance: PALBOCICLIB
     Indication: BREAST CANCER
     Dosage: 125 MG, CYCLIC (1 DAILY FOR 21 DAYS)
     Route: 048
     Dates: start: 20200615, end: 202006
  2. IBRANCE [Suspect]
     Active Substance: PALBOCICLIB
     Dosage: 75 MG, CYCLIC, [1 DAILY FOR 21 DAYS]
     Route: 048
     Dates: start: 202006

REACTIONS (3)
  - White blood cell count decreased [Unknown]
  - Alopecia [Unknown]
  - Dry skin [Unknown]

NARRATIVE: CASE EVENT DATE: 2020
